FAERS Safety Report 4898121-2 (Version None)
Quarter: 2006Q1

REPORT INFORMATION
  Report Type: 
  Country: None (occurrence: None)
  Receive Date: 20060130
  Receipt Date: 20060116
  Transmission Date: 20060701
  Serious: Yes (Other)
  Sender: FDA-Public Use
  Company Number: 2006008130

PATIENT
  Age: 38 Year
  Sex: Female
  Weight: 68.0396 kg

DRUGS (1)
  1. BENADRYL [Suspect]
     Indication: HYPERSENSITIVITY
     Dosage: 6 KAPSEALS TWICE DAILY, ORAL
     Route: 048
     Dates: end: 20060116

REACTIONS (3)
  - DYSPNOEA [None]
  - SWELLING FACE [None]
  - THROAT TIGHTNESS [None]
